FAERS Safety Report 8472678-7 (Version None)
Quarter: 2012Q2

REPORT INFORMATION
  Report Type: 
  Country: None (occurrence: None)
  Receive Date: 20120323
  Receipt Date: 20111025
  Transmission Date: 20120825
  Serious: Yes (Other)
  Sender: FDA-Public Use
  Company Number: 163-21880-11102972

PATIENT
  Age: 62 Year
  Sex: Male
  Weight: 78 kg

DRUGS (4)
  1. REVLIMID [Suspect]
     Indication: MULTIPLE MYELOMA
     Dosage: 25;15 MG, 1 IN 1 D, PO
     Route: 048
     Dates: start: 20110101, end: 20110401
  2. REVLIMID [Suspect]
     Indication: MULTIPLE MYELOMA
     Dosage: 25;15 MG, 1 IN 1 D, PO
     Route: 048
     Dates: start: 20081101
  3. REVLIMID [Suspect]
     Indication: MULTIPLE MYELOMA
     Dosage: 25;15 MG, 1 IN 1 D, PO
     Route: 048
     Dates: start: 20101101
  4. REVLIMID [Suspect]
     Indication: MULTIPLE MYELOMA
     Dosage: 25;15 MG, 1 IN 1 D, PO
     Route: 048
     Dates: start: 20100401

REACTIONS (1)
  - RENAL FAILURE [None]
